FAERS Safety Report 22333251 (Version 1)
Quarter: 2023Q2

REPORT INFORMATION
  Report Type: Spontaneous
  Country: RO (occurrence: RO)
  Receive Date: 20230517
  Receipt Date: 20230517
  Transmission Date: 20230722
  Serious: Yes (Hospitalization, Other)
  Sender: FDA-Public Use
  Company Number: RO-AMGEN-ROUSP2023072510

PATIENT
  Age: 58 Year
  Sex: Male

DRUGS (4)
  1. LEUCOVORIN [Suspect]
     Active Substance: LEUCOVORIN
     Indication: Colorectal cancer metastatic
     Dosage: UNK UNK, Q2WK
     Route: 042
     Dates: start: 20211126
  2. IRINOTECAN [Suspect]
     Active Substance: IRINOTECAN
     Indication: Colorectal cancer metastatic
     Dosage: UNK, Q2WK
     Route: 042
     Dates: start: 20211126
  3. VECTIBIX [Suspect]
     Active Substance: PANITUMUMAB
     Indication: Colorectal cancer metastatic
     Dosage: UNK Q2WK
     Route: 042
     Dates: start: 20211126
  4. FLUOROURACIL [Suspect]
     Active Substance: FLUOROURACIL
     Indication: Colorectal cancer metastatic
     Dosage: UNK, Q2WK
     Route: 042
     Dates: start: 20211126

REACTIONS (4)
  - Febrile neutropenia [None]
  - Pulmonary embolism [None]
  - Skin toxicity [None]
  - Diarrhoea [None]

NARRATIVE: CASE EVENT DATE: 20220101
